FAERS Safety Report 14304452 (Version 1)
Quarter: 2017Q4

REPORT INFORMATION
  Report Type: Report from Study
  Country: FR (occurrence: FR)
  Receive Date: 20171219
  Receipt Date: 20171219
  Transmission Date: 20180321
  Serious: Yes (Death, Hospitalization, Other)
  Sender: FDA-Public Use
  Company Number: PHHY2017FR187740

PATIENT
  Sex: Male

DRUGS (2)
  1. RITUXIMAB. [Suspect]
     Active Substance: RITUXIMAB
     Indication: IMMUNE THROMBOCYTOPENIC PURPURA
     Route: 065
  2. ELTROMBOPAG [Suspect]
     Active Substance: ELTROMBOPAG
     Indication: PRODUCT USED FOR UNKNOWN INDICATION
     Route: 065

REACTIONS (13)
  - Osteoarthritis [Recovered/Resolved with Sequelae]
  - Erysipelas [Unknown]
  - Ill-defined disorder [Unknown]
  - Ulcer [Unknown]
  - Deep vein thrombosis [Unknown]
  - Death [Fatal]
  - Infection [Unknown]
  - Pulmonary embolism [Unknown]
  - Extremity necrosis [Recovered/Resolved with Sequelae]
  - Drug-induced liver injury [Recovered/Resolved]
  - Refractory anaemia with an excess of blasts [Unknown]
  - Osteitis [Recovered/Resolved with Sequelae]
  - Peripheral arterial occlusive disease [Unknown]

NARRATIVE: CASE EVENT DATE: 201211
